FAERS Safety Report 7025201-8 (Version None)
Quarter: 2010Q3

REPORT INFORMATION
  Report Type: 
  Country: None (occurrence: None)
  Receive Date: 20100916
  Receipt Date: 20100630
  Transmission Date: 20110219
  Serious: Yes (Hospitalization)
  Sender: FDA-Public Use
  Company Number: DKLU1063305

PATIENT
  Age: 30 Month
  Sex: Male

DRUGS (2)
  1. SABRIL [Suspect]
     Indication: CONVULSION
     Dosage: 250 MG MILLIGRAM(S), 2 IN 1 D, ORAL; 250 MG MILLIGRAM(S), 1 IN 2 D, ORAL
     Route: 048
     Dates: start: 20100619, end: 20100620
  2. SABRIL [Suspect]
     Indication: CONVULSION
     Dosage: 250 MG MILLIGRAM(S), 2 IN 1 D, ORAL; 250 MG MILLIGRAM(S), 1 IN 2 D, ORAL
     Route: 048
     Dates: start: 20100622

REACTIONS (2)
  - CONVULSION [None]
  - SOMNOLENCE [None]
